FAERS Safety Report 5101723-1 (Version None)
Quarter: 2006Q3

REPORT INFORMATION
  Report Type: 
  Country: None (occurrence: None)
  Receive Date: 20060731
  Receipt Date: 20060602
  Transmission Date: 20061208
  Serious: No
  Sender: FDA-Public Use
  Company Number: 2006PV014918

PATIENT
  Age: 67 Year
  Sex: Male

DRUGS (2)
  1. BYETTA [Suspect]
     Indication: DRUG USE FOR UNKNOWN INDICATION
     Dosage: 5 MCG;SC
     Route: 058
     Dates: start: 20060503, end: 20060531
  2. COREG [Concomitant]

REACTIONS (2)
  - DYSPNOEA [None]
  - DYSPNOEA EXERTIONAL [None]
